FAERS Safety Report 9882770 (Version 4)
Quarter: 2015Q3

REPORT INFORMATION
  Report Type: Report from Study
  Country: US (occurrence: US)
  Receive Date: 20140207
  Receipt Date: 20150717
  Transmission Date: 20151125
  Serious: No
  Sender: FDA-Public Use
  Company Number: US-GILEAD-2014-0093770

PATIENT
  Age: 62 Year
  Sex: Male

DRUGS (3)
  1. SOFOSBUVIR [Suspect]
     Active Substance: SOFOSBUVIR
     Indication: CHRONIC HEPATITIS C
     Dosage: UNK
     Route: 065
     Dates: start: 20140203
  2. RIBAVIRIN. [Concomitant]
     Active Substance: RIBAVIRIN
  3. OXYCODONE [Concomitant]
     Active Substance: OXYCODONE

REACTIONS (13)
  - Dizziness [Unknown]
  - Decreased appetite [Unknown]
  - Abdominal pain [Unknown]
  - Pyrexia [Unknown]
  - Insomnia [Unknown]
  - Syncope [Recovered/Resolved]
  - Unevaluable event [Unknown]
  - Asthenia [Unknown]
  - Eating disorder [Unknown]
  - Sleep disorder [Unknown]
  - Asthenia [Unknown]
  - Headache [Unknown]
  - Fatigue [Unknown]

NARRATIVE: CASE EVENT DATE: 20140203
